FAERS Safety Report 24774551 (Version 1)
Quarter: 2024Q4

REPORT INFORMATION
  Report Type: Spontaneous
  Country: CN (occurrence: CN)
  Receive Date: 20241225
  Receipt Date: 20241225
  Transmission Date: 20250114
  Serious: Yes (Hospitalization, Other)
  Sender: Haleon PLC
  Company Number: CN-HALEON-2217562

PATIENT
  Age: 37 Year
  Sex: Female

DRUGS (4)
  1. IBUPROFEN [Suspect]
     Active Substance: IBUPROFEN
     Indication: Pyrexia
     Route: 048
     Dates: start: 20241207, end: 20241207
  2. HERBALS [Suspect]
     Active Substance: HERBALS
     Indication: Nasopharyngitis
     Dosage: TIME INTERVAL: 0.33333333 DAYS: FORMULATION: MIXTURE
     Route: 048
     Dates: start: 20241207, end: 20241207
  3. HERBALS [Suspect]
     Active Substance: HERBALS
     Indication: Pyrexia
  4. AZITHROMYCIN [Suspect]
     Active Substance: AZITHROMYCIN
     Indication: Upper respiratory tract infection
     Route: 048
     Dates: start: 20241212, end: 20241213

REACTIONS (5)
  - Liver injury [Recovering/Resolving]
  - Decreased appetite [Recovering/Resolving]
  - Hepatic failure [Recovering/Resolving]
  - Drug-induced liver injury [Recovering/Resolving]
  - Chromaturia [Recovering/Resolving]

NARRATIVE: CASE EVENT DATE: 20241208
